FAERS Safety Report 21170100 (Version 1)
Quarter: 2022Q3

REPORT INFORMATION
  Report Type: Spontaneous
  Country: SE (occurrence: SE)
  Receive Date: 20220804
  Receipt Date: 20220804
  Transmission Date: 20221027
  Serious: Yes (Death, Life-Threatening, Hospitalization, Other)
  Sender: FDA-Public Use
  Company Number: SE-CELLTRION INC.-2022SE009512

PATIENT

DRUGS (16)
  1. INFLIXIMAB [Suspect]
     Active Substance: INFLIXIMAB
     Indication: Pneumonia
     Dosage: 5 MG/KG
     Dates: start: 2020
  2. INFLIXIMAB [Suspect]
     Active Substance: INFLIXIMAB
     Indication: COVID-19
  3. PREDNISOLONE [Suspect]
     Active Substance: PREDNISOLONE
     Indication: Pneumonia
     Dosage: 2 MG/KG/DAY
  4. PREDNISOLONE [Suspect]
     Active Substance: PREDNISOLONE
     Indication: COVID-19
  5. CLOPIDOGREL [Suspect]
     Active Substance: CLOPIDOGREL BISULFATE
     Indication: Hepatosplenomegaly
  6. CLOPIDOGREL [Suspect]
     Active Substance: CLOPIDOGREL BISULFATE
     Indication: Ascites
  7. ACETAMINOPHEN [Suspect]
     Active Substance: ACETAMINOPHEN
     Indication: Hepatosplenomegaly
  8. ACETAMINOPHEN [Suspect]
     Active Substance: ACETAMINOPHEN
     Indication: Ascites
  9. IBUPROFEN [Suspect]
     Active Substance: IBUPROFEN
     Indication: Hepatosplenomegaly
  10. IBUPROFEN [Suspect]
     Active Substance: IBUPROFEN
     Indication: Ascites
  11. IMMUNE GLOBULIN NOS [Suspect]
     Active Substance: IMMUNE GLOBULIN NOS
     Indication: Pneumonia
     Dosage: 1 GRAM PER KILOGRAM FOR 2 DAYS (IMMUNOMODULATORY DOSE)
     Route: 042
  12. IMMUNE GLOBULIN NOS [Suspect]
     Active Substance: IMMUNE GLOBULIN NOS
     Indication: COVID-19
  13. IMMUNE GLOBULIN NOS [Suspect]
     Active Substance: IMMUNE GLOBULIN NOS
     Indication: Hepatosplenomegaly
  14. IMMUNE GLOBULIN NOS [Suspect]
     Active Substance: IMMUNE GLOBULIN NOS
     Indication: Ascites
  15. ASPIRIN [Suspect]
     Active Substance: ASPIRIN
     Indication: Pneumonia
     Dosage: 50 MG/KG/DAY
  16. ASPIRIN [Suspect]
     Active Substance: ASPIRIN
     Indication: COVID-19

REACTIONS (6)
  - COVID-19 pneumonia [Fatal]
  - Multisystem inflammatory syndrome [Fatal]
  - Acute left ventricular failure [Fatal]
  - Ventricular tachyarrhythmia [Fatal]
  - Drug ineffective [Fatal]
  - Off label use [Unknown]
